FAERS Safety Report 25174613 (Version 1)
Quarter: 2025Q2

REPORT INFORMATION
  Report Type: Spontaneous
  Country: US (occurrence: US)
  Receive Date: 20250408
  Receipt Date: 20250408
  Transmission Date: 20250717
  Serious: Yes (Other)
  Sender: ROCHE
  Company Number: US-ROCHE-10000249344

PATIENT
  Age: 43 Year
  Sex: Female

DRUGS (4)
  1. ALTEPLASE [Suspect]
     Active Substance: ALTEPLASE
     Indication: Cardiac ventricular thrombosis
     Route: 042
  2. ALTEPLASE [Suspect]
     Active Substance: ALTEPLASE
     Route: 042
  3. BIVALIRUDIN [Concomitant]
     Active Substance: BIVALIRUDIN
     Route: 042
  4. WARFARIN [Concomitant]
     Active Substance: WARFARIN

REACTIONS (2)
  - Headache [Recovering/Resolving]
  - Nausea [Recovering/Resolving]
